FAERS Safety Report 21798048 (Version 1)
Quarter: 2022Q4

REPORT INFORMATION
  Report Type: Report from Study
  Country: JP (occurrence: JP)
  Receive Date: 20221230
  Receipt Date: 20221230
  Transmission Date: 20230113
  Serious: Yes (Life-Threatening, Other)
  Sender: FDA-Public Use
  Company Number: JP-PFIZER INC-PV202200131885

PATIENT
  Age: 7 Decade
  Sex: Male

DRUGS (1)
  1. EPINEPHRINE [Suspect]
     Active Substance: EPINEPHRINE
     Dosage: UNK (HYPERTONIC SALINE EPINEPHRINE INJECTION)

REACTIONS (1)
  - Large intestine perforation [Unknown]
